FAERS Safety Report 11626610 (Version 1)
Quarter: 2015Q4

REPORT INFORMATION
  Report Type: Spontaneous
  Country: US (occurrence: US)
  Receive Date: 20151013
  Receipt Date: 20151013
  Transmission Date: 20160304
  Serious: Yes (Other)
  Sender: FDA-Public Use
  Company Number: US-TEVA-599829USA

PATIENT
  Sex: Female

DRUGS (2)
  1. LAMOTRIGINE. [Suspect]
     Active Substance: LAMOTRIGINE
     Indication: SEIZURE
     Route: 065
  2. LAMICTAL [Suspect]
     Active Substance: LAMOTRIGINE
     Route: 065

REACTIONS (5)
  - Abnormal behaviour [Unknown]
  - Tongue biting [Unknown]
  - Unresponsive to stimuli [Unknown]
  - Dizziness [Recovered/Resolved]
  - Altered state of consciousness [Unknown]
